FAERS Safety Report 9297690 (Version 2)
Quarter: 2013Q3

REPORT INFORMATION
  Report Type: Spontaneous
  Country: TR (occurrence: TR)
  Receive Date: 20130520
  Receipt Date: 20130930
  Transmission Date: 20140515
  Serious: Yes (Life-Threatening, Hospitalization, Other)
  Sender: FDA-Public Use
  Company Number: PHHY2013TR048908

PATIENT
  Age: 73 Year
  Sex: Female

DRUGS (4)
  1. ACLASTA [Suspect]
     Indication: OSTEOPOROSIS
     Dosage: UNK (ONCE EVERY YEAR)
     Route: 042
     Dates: start: 20130507
  2. CALCIMAX D3                        /00944201/ [Concomitant]
     Dosage: UNK
  3. VOLTAREN [Concomitant]
     Dosage: UNK
  4. PAROL [Concomitant]
     Dosage: UNK

REACTIONS (5)
  - Leukopenia [Recovered/Resolved]
  - Atrial fibrillation [Recovered/Resolved]
  - Heart rate increased [Recovered/Resolved]
  - Pyrexia [Recovered/Resolved]
  - Blood calcium decreased [Recovered/Resolved]
